FAERS Safety Report 8274508-5 (Version None)
Quarter: 2012Q2

REPORT INFORMATION
  Report Type: 
  Country: None (occurrence: None)
  Receive Date: 20120411
  Receipt Date: 20120402
  Transmission Date: 20120825
  Serious: Yes (Other)
  Sender: FDA-Public Use
  Company Number: US-ASTRAZENECA-2012SE21732

PATIENT
  Age: 960 Month
  Sex: Female
  Weight: 85.3 kg

DRUGS (4)
  1. CRESTOR [Suspect]
     Indication: BLOOD CHOLESTEROL INCREASED
     Route: 048
  2. AMLODIPINE [Concomitant]
  3. BENAZEPRIL HYDROCHLORIDE [Concomitant]
  4. HIGH BLOOD PRESSURE PILLS [Concomitant]
     Indication: HYPERTENSION

REACTIONS (3)
  - RENAL CANCER [None]
  - MUSCLE SPASMS [None]
  - OFF LABEL USE [None]
